FAERS Safety Report 9242814 (Version 2)
Quarter: 2013Q2

REPORT INFORMATION
  Report Type: Report from Study
  Country: CZ (occurrence: CZ)
  Receive Date: 20130418
  Receipt Date: 20130425
  Transmission Date: 20140414
  Serious: Yes (Hospitalization)
  Sender: FDA-Public Use
  Company Number: CZ-JNJFOC-20130406922

PATIENT
  Age: 48 Year
  Sex: Female

DRUGS (4)
  1. GOLIMUMAB [Suspect]
     Indication: RHEUMATOID ARTHRITIS
     Route: 058
     Dates: start: 20120215
  2. WARFARIN [Concomitant]
     Indication: EMBOLISM
     Route: 058
     Dates: start: 20120529, end: 20130305
  3. MEDROL [Concomitant]
  4. NALTREXONE HYDROCHLORIDE [Concomitant]

REACTIONS (2)
  - Vaginal haemorrhage [Recovered/Resolved]
  - Uterine leiomyoma [Recovered/Resolved]
